FAERS Safety Report 20679196 (Version 8)
Quarter: 2022Q3

REPORT INFORMATION
  Report Type: Report from Study
  Country: US (occurrence: US)
  Receive Date: 20220406
  Receipt Date: 20220805
  Transmission Date: 20221027
  Serious: Yes (Other)
  Sender: FDA-Public Use
  Company Number: US-NOVARTISPH-NVSC2022US077492

PATIENT
  Sex: Female

DRUGS (1)
  1. COSENTYX [Suspect]
     Active Substance: SECUKINUMAB
     Indication: Product used for unknown indication
     Dosage: UNK
     Route: 065

REACTIONS (12)
  - Autoimmune disorder [Unknown]
  - Diverticulitis [Unknown]
  - Wound [Unknown]
  - Foot deformity [Unknown]
  - Peripheral swelling [Unknown]
  - Feeling abnormal [Unknown]
  - Psoriasis [Unknown]
  - Pain [Unknown]
  - Joint swelling [Unknown]
  - Pain in extremity [Unknown]
  - Abdominal pain upper [Unknown]
  - Product dose omission issue [Unknown]
